FAERS Safety Report 9003565 (Version 1)
Quarter: 2013Q1

REPORT INFORMATION
  Report Type: Spontaneous
  Country: CA (occurrence: CA)
  Receive Date: 20130108
  Receipt Date: 20130108
  Transmission Date: 20140127
  Serious: Yes (Other)
  Sender: FDA-Public Use
  Company Number: PHHY2012CA122879

PATIENT
  Sex: Female

DRUGS (4)
  1. ACLASTA [Suspect]
     Indication: OSTEOPOROSIS
     Dosage: UNK
     Route: 042
     Dates: start: 20081021
  2. ACLASTA [Suspect]
     Dosage: UNK
     Route: 042
     Dates: start: 20091117
  3. ACLASTA [Suspect]
     Dosage: UNK
     Route: 042
     Dates: start: 20101110
  4. ACLASTA [Suspect]
     Dosage: UNK
     Route: 042
     Dates: start: 20111209

REACTIONS (1)
  - Road traffic accident [Unknown]
